FAERS Safety Report 4897162-9 (Version None)
Quarter: 2006Q1

REPORT INFORMATION
  Report Type: 
  Country: None (occurrence: None)
  Receive Date: 20060131
  Receipt Date: 20050818
  Transmission Date: 20060701
  Serious: Yes (Hospitalization, Disabling)
  Sender: FDA-Public Use
  Company Number: US-MERCK-0508USA03248

PATIENT
  Age: 52 Year
  Sex: Male
  Weight: 103 kg

DRUGS (3)
  1. VIOXX [Suspect]
     Indication: OSTEOARTHRITIS
     Route: 048
     Dates: start: 20010401, end: 20020929
  2. VIOXX [Suspect]
     Route: 048
     Dates: start: 20010401, end: 20020929
  3. ASPIRIN [Concomitant]
     Route: 065

REACTIONS (7)
  - ANGINA UNSTABLE [None]
  - ARTHROPATHY [None]
  - CARDIOVASCULAR DISORDER [None]
  - CARTILAGE INJURY [None]
  - CORONARY ARTERY DISEASE [None]
  - JOINT INJURY [None]
  - MYOCARDIAL INFARCTION [None]
